FAERS Safety Report 6565596-2 (Version None)
Quarter: 2010Q1

REPORT INFORMATION
  Report Type: 
  Country: None (occurrence: None)
  Receive Date: 20100201
  Receipt Date: 20100122
  Transmission Date: 20100710
  Serious: No
  Sender: FDA-Public Use
  Company Number: LT-RB-014076-09

PATIENT
  Age: 28 Year
  Sex: Male

DRUGS (1)
  1. SUBOXONE [Suspect]
     Dosage: DOSING INFORMATION UNKNOWN
     Route: 065

REACTIONS (3)
  - ABNORMAL BEHAVIOUR [None]
  - MENTAL DISORDER [None]
  - WITHDRAWAL SYNDROME [None]
